FAERS Safety Report 8034316-7 (Version None)
Quarter: 2012Q1

REPORT INFORMATION
  Report Type: 
  Country: None (occurrence: None)
  Receive Date: 20120110
  Receipt Date: 20120104
  Transmission Date: 20120608
  Serious: Yes (Congenital Anomaly, Other)
  Sender: FDA-Public Use
  Company Number: FR-ROCHE-1027627

PATIENT
  Age: 19 Week

DRUGS (6)
  1. EUPHYTOSE [Suspect]
     Indication: DEPRESSION
     Route: 064
  2. CLONAZEPAM [Suspect]
     Indication: ARTHROPATHY
     Route: 064
  3. CITALOPRAM [Suspect]
     Indication: DEPRESSION
     Route: 064
  4. PRAZEPAM [Suspect]
     Indication: DEPRESSION
     Route: 064
  5. HUMIRA [Suspect]
     Indication: CROHN'S DISEASE
     Route: 064
  6. IMURAN [Suspect]
     Indication: CROHN'S DISEASE
     Route: 064

REACTIONS (4)
  - SPINA BIFIDA [None]
  - ARNOLD-CHIARI MALFORMATION [None]
  - MENINGOCELE [None]
  - MATERNAL EXPOSURE TIMING UNSPECIFIED [None]
